FAERS Safety Report 7065393-8 (Version None)
Quarter: 2010Q4

REPORT INFORMATION
  Report Type: 
  Country: None (occurrence: None)
  Receive Date: 20101027
  Receipt Date: 20101020
  Transmission Date: 20110411
  Serious: Yes (Hospitalization)
  Sender: FDA-Public Use
  Company Number: EC-B.I. PHARMACEUTICALS,INC./RIDGEFIELD-2010-RA-00370RA

PATIENT
  Age: 74 Year

DRUGS (3)
  1. DABIGATRAN ETEXILATE [Suspect]
     Indication: THROMBOSIS PROPHYLAXIS
     Route: 048
  2. ASPIRIN [Concomitant]
  3. ENOXAPARIN SODIUM [Concomitant]

REACTIONS (2)
  - HAEMOLYSIS [None]
  - HAEMORRHAGE [None]
